FAERS Safety Report 16785613 (Version 7)
Quarter: 2022Q4

REPORT INFORMATION
  Report Type: Spontaneous
  Country: US (occurrence: US)
  Receive Date: 20190909
  Receipt Date: 20221201
  Transmission Date: 20230113
  Serious: No
  Sender: FDA-Public Use
  Company Number: US-PFIZER INC-2019386974

PATIENT
  Age: 60 Year
  Sex: Female
  Weight: 53.07 kg

DRUGS (1)
  1. PREMARIN [Suspect]
     Active Substance: ESTROGENS, CONJUGATED
     Indication: Hormone replacement therapy
     Dosage: NDC NUMBER: 408079387798

REACTIONS (6)
  - Intentional product misuse [Unknown]
  - Therapeutic response shortened [Unknown]
  - Psychotic disorder [Unknown]
  - Illness [Unknown]
  - Gastroenteritis viral [Unknown]
  - Mood swings [Unknown]

NARRATIVE: CASE EVENT DATE: 20221101
